FAERS Safety Report 15623966 (Version 2)
Quarter: 2018Q4

REPORT INFORMATION
  Report Type: Report from Study
  Country: GB (occurrence: GB)
  Receive Date: 20181116
  Receipt Date: 20181120
  Transmission Date: 20190205
  Serious: Yes (Other)
  Sender: FDA-Public Use
  Company Number: GB-AMGEN-GBRCT2018162037

PATIENT
  Age: 70 Year
  Sex: Male
  Weight: 91.8 kg

DRUGS (6)
  1. LENALIDOMIDE [Suspect]
     Active Substance: LENALIDOMIDE
     Dosage: 10 MG, PER CHEMO REGIM
     Route: 048
     Dates: end: 20161018
  2. CARFILZOMIB [Suspect]
     Active Substance: CARFILZOMIB
     Indication: PLASMA CELL MYELOMA
     Dosage: 40 MG/M2, PER CHEMO REGIM
     Route: 042
     Dates: start: 20160217
  3. CYCLOPHOSPHAMIDE. [Suspect]
     Active Substance: CYCLOPHOSPHAMIDE
     Indication: PLASMA CELL MYELOMA
     Dosage: 500 MG, PER CHEMO REGIM
     Route: 048
     Dates: start: 20160217
  4. LENALIDOMIDE [Suspect]
     Active Substance: LENALIDOMIDE
     Indication: PLASMA CELL MYELOMA
     Dosage: 25 MG, PER CHEMO REGIM
     Route: 048
     Dates: start: 20160217
  5. DEXAMETHASONE. [Suspect]
     Active Substance: DEXAMETHASONE
     Indication: PLASMA CELL MYELOMA
     Dosage: 40 MG, PER CHEMO REGIM
     Route: 048
     Dates: start: 20160217
  6. CARFILZOMIB [Suspect]
     Active Substance: CARFILZOMIB
     Dosage: 72 MG/M2, PER CHEMO REGIM
     Route: 042

REACTIONS (1)
  - Prostate cancer recurrent [Not Recovered/Not Resolved]

NARRATIVE: CASE EVENT DATE: 20181015
